FAERS Safety Report 8482293-7 (Version None)
Quarter: 2012Q3

REPORT INFORMATION
  Report Type: 
  Country: None (occurrence: None)
  Receive Date: 20120702
  Receipt Date: 20120619
  Transmission Date: 20120928
  Serious: Yes (Death)
  Sender: FDA-Public Use
  Company Number: US-ROCHE-1082407

PATIENT
  Age: 75 Year
  Sex: Female

DRUGS (21)
  1. LINEZOLID [Concomitant]
     Route: 042
  2. AMIODARONE HYDROCHLORIDE [Concomitant]
     Route: 042
  3. DOPAMINE HCL [Concomitant]
     Route: 042
  4. NOREPINEPHRINE [Concomitant]
  5. DOCUSATE [Concomitant]
  6. CIPROFLOXACIN HYDROCHLORIDE [Concomitant]
     Route: 042
  7. DOBUTAMINE HCL [Concomitant]
     Route: 042
  8. HEPARIN [Suspect]
     Indication: PULMONARY EMBOLISM
  9. BIOTIN [Concomitant]
  10. THIAMINE HCL [Concomitant]
     Route: 048
  11. CEFEPIME [Concomitant]
     Route: 042
  12. ENOXAPARIN [Suspect]
     Indication: PULMONARY EMBOLISM
     Route: 058
  13. CALCIUM CITRATE [Concomitant]
  14. PANTOPRAZOLE [Concomitant]
     Route: 042
  15. SPIRONOLACTONE [Concomitant]
  16. XOPENEX [Concomitant]
  17. VASOPRESSIN [Concomitant]
  18. FENTANYL [Concomitant]
  19. ALTEPLASE [Suspect]
     Indication: PULMONARY EMBOLISM
     Route: 042
  20. BIVALIRUDIN [Suspect]
     Indication: PULMONARY EMBOLISM
  21. HYDROCORTISONE [Concomitant]
     Route: 042

REACTIONS (11)
  - MULTI-ORGAN FAILURE [None]
  - THROMBOCYTOPENIA [None]
  - SEPTIC SHOCK [None]
  - RENAL FAILURE [None]
  - TOXIC EPIDERMAL NECROLYSIS [None]
  - ANAEMIA [None]
  - ENCEPHALOPATHY [None]
  - COAGULOPATHY [None]
  - HEPATIC FAILURE [None]
  - RESPIRATORY FAILURE [None]
  - CARDIOGENIC SHOCK [None]
